FAERS Safety Report 4302889-3 (Version None)
Quarter: 2004Q1

REPORT INFORMATION
  Report Type: 
  Country: None (occurrence: None)
  Receive Date: 20040223
  Receipt Date: 20040223
  Transmission Date: 20041129
  Serious: No
  Sender: FDA-Public Use
  Company Number: None

PATIENT
  Age: 27 Year
  Sex: Female
  Weight: 144.2439 kg

DRUGS (1)
  1. PAXIL [Suspect]
     Indication: BIPOLAR DISORDER
     Dosage: 1 PILL ONCE A DAY ORAL
     Route: 048

REACTIONS (4)
  - AGGRESSION [None]
  - ANGER [None]
  - SUICIDAL IDEATION [None]
  - SUICIDE ATTEMPT [None]
